FAERS Safety Report 17599540 (Version 1)
Quarter: 2020Q1

REPORT INFORMATION
  Report Type: Report from Study
  Country: None (occurrence: US)
  Receive Date: 20200330
  Receipt Date: 20200330
  Transmission Date: 20200409
  Serious: Yes (Hospitalization, Other)
  Sender: FDA-Public Use
  Company Number: US-ABBVIE-20P-163-3304782-00

PATIENT
  Age: 80 Year
  Sex: Female
  Weight: 86.26 kg

DRUGS (11)
  1. POTASSIUM [Concomitant]
     Active Substance: POTASSIUM
     Indication: VITAMIN SUPPLEMENTATION
  2. RINVOQ [Suspect]
     Active Substance: UPADACITINIB
     Indication: RHEUMATOID ARTHRITIS
     Route: 048
     Dates: start: 2019, end: 202002
  3. GABAPENTIN. [Concomitant]
     Active Substance: GABAPENTIN
     Indication: NEUROPATHY PERIPHERAL
  4. METFORMIN [Concomitant]
     Active Substance: METFORMIN HYDROCHLORIDE
     Indication: DIABETES MELLITUS
  5. METOPROLOL. [Concomitant]
     Active Substance: METOPROLOL
     Indication: CARDIAC DISORDER
  6. CARDIZEM [Concomitant]
     Active Substance: DILTIAZEM HYDROCHLORIDE
     Indication: CARDIAC DISORDER
  7. CHLORTHALIDONE. [Concomitant]
     Active Substance: CHLORTHALIDONE
     Indication: BLOOD PRESSURE MEASUREMENT
  8. LOVASTATIN. [Concomitant]
     Active Substance: LOVASTATIN
     Indication: BLOOD CHOLESTEROL
  9. CITALOPRAM [Concomitant]
     Active Substance: CITALOPRAM HYDROBROMIDE
     Indication: DEPRESSION
  10. MONTELUKAST [Concomitant]
     Active Substance: MONTELUKAST SODIUM
     Indication: ASTHMA
  11. MEMANTINE. [Concomitant]
     Active Substance: MEMANTINE
     Indication: MEMORY IMPAIRMENT

REACTIONS (8)
  - Asthma [Recovering/Resolving]
  - Dyspnoea [Recovering/Resolving]
  - Feeling abnormal [Recovering/Resolving]
  - Malaise [Recovering/Resolving]
  - Pulmonary fibrosis [Recovering/Resolving]
  - Pneumonia [Recovering/Resolving]
  - Lung disorder [Recovering/Resolving]
  - Pleural thickening [Recovering/Resolving]

NARRATIVE: CASE EVENT DATE: 202002
